FAERS Safety Report 8409812-0 (Version None)
Quarter: 2012Q2

REPORT INFORMATION
  Report Type: 
  Country: None (occurrence: None)
  Receive Date: 20120605
  Receipt Date: 20120605
  Transmission Date: 20120825
  Serious: Yes (Death)
  Sender: FDA-Public Use
  Company Number: US-PFIZER INC-2009RR-27249

PATIENT
  Age: 89 Year
  Sex: Female

DRUGS (2)
  1. POTASSIUM CHLORIDE [Suspect]
     Dosage: 10 MEQ, UNK
     Route: 048
  2. VERAPAMIL HCL [Suspect]
     Dosage: UNK
     Route: 048

REACTIONS (8)
  - INTENTIONAL DRUG MISUSE [None]
  - BLOOD PRESSURE DECREASED [None]
  - COMPLETED SUICIDE [None]
  - BLOOD UREA INCREASED [None]
  - BLOOD CREATININE INCREASED [None]
  - BLOOD POTASSIUM INCREASED [None]
  - HEART RATE DECREASED [None]
  - TOXICITY TO VARIOUS AGENTS [None]
